FAERS Safety Report 12456619 (Version 1)
Quarter: 2016Q2

REPORT INFORMATION
  Report Type: Spontaneous
  Country: US (occurrence: US)
  Receive Date: 20160610
  Receipt Date: 20160610
  Transmission Date: 20160815
  Serious: No
  Sender: FDA-Public Use
  Company Number: GXBR2016US000776

PATIENT
  Age: 49 Year
  Sex: Female

DRUGS (1)
  1. TIZANIDINE SANDOZ [Suspect]
     Active Substance: TIZANIDINE
     Indication: MUSCLE SPASMS
     Dosage: 4 MG, ONCE/SINGLE
     Route: 048

REACTIONS (1)
  - Somnolence [Unknown]
